FAERS Safety Report 8544395-6 (Version None)
Quarter: 2012Q3

REPORT INFORMATION
  Report Type: 
  Country: None (occurrence: None)
  Receive Date: 20120727
  Receipt Date: 20120717
  Transmission Date: 20120928
  Serious: Yes (Hospitalization)
  Sender: FDA-Public Use
  Company Number: US-BAYER-2012-000099

PATIENT
  Age: 21 Year
  Sex: Female
  Weight: 58.05 kg

DRUGS (7)
  1. YAZ [Suspect]
     Indication: MENSTRUATION IRREGULAR
  2. SYMBICORT [Concomitant]
     Dosage: 160MCG/4.5 MCG 2 INHALATIONS BY MOUTH BID
     Route: 048
  3. ATIVAN [Concomitant]
     Indication: ANXIETY
  4. IBUPROFEN [Concomitant]
  5. MELOXICAM [Concomitant]
  6. FLEXERIL [Concomitant]
  7. YAZ [Suspect]
     Indication: PREMENSTRUAL SYNDROME
     Dosage: UNK
     Dates: start: 20080401, end: 20080901

REACTIONS (3)
  - PAIN [None]
  - INJURY [None]
  - PULMONARY EMBOLISM [None]
